FAERS Safety Report 7728515-9 (Version None)
Quarter: 2011Q3

REPORT INFORMATION
  Report Type: 
  Country: None (occurrence: None)
  Receive Date: 20110906
  Receipt Date: 20110825
  Transmission Date: 20111222
  Serious: No
  Sender: FDA-Public Use
  Company Number: US-BIOGENIDEC-2011BI019523

PATIENT
  Age: 39 Year
  Sex: Male

DRUGS (2)
  1. AVONEX [Suspect]
     Indication: MULTIPLE SCLEROSIS
     Route: 030
     Dates: start: 20110502, end: 20110526
  2. NAPROXEN (ALEVE) [Concomitant]
     Indication: PREMEDICATION

REACTIONS (8)
  - FAECES DISCOLOURED [None]
  - INFLUENZA LIKE ILLNESS [None]
  - PAIN [None]
  - VENTRICULAR EXTRASYSTOLES [None]
  - HEART RATE IRREGULAR [None]
  - DYSPNOEA [None]
  - BRADYCARDIA [None]
  - MALAISE [None]
